FAERS Safety Report 19460950 (Version 2)
Quarter: 2021Q3

REPORT INFORMATION
  Report Type: Report from Study
  Country: FR (occurrence: FR)
  Receive Date: 20210625
  Receipt Date: 20210701
  Transmission Date: 20211014
  Serious: Yes (Hospitalization)
  Sender: FDA-Public Use
  Company Number: FR-ROCHE-2847174

PATIENT
  Age: 88 Year

DRUGS (10)
  1. AMLODIPINE [Concomitant]
     Active Substance: AMLODIPINE BESYLATE
     Dosage: 1 TABLET/DAY
  2. PANTOPRAZOLE [Concomitant]
     Active Substance: PANTOPRAZOLE
  3. CACIT D3 [Concomitant]
     Active Substance: CALCIUM\CHOLECALCIFEROL
  4. BISOPROLOL [Concomitant]
     Active Substance: BISOPROLOL
  5. ACTONEL [Concomitant]
     Active Substance: RISEDRONATE SODIUM
  6. PERTUZUMAB. [Suspect]
     Active Substance: PERTUZUMAB
     Indication: BREAST CANCER
     Dosage: 840 MG LOADING DOSE OF LAST ADMINISTRATION PRIOR TO SAE 06/APR/2021
     Route: 042
     Dates: start: 20210222
  7. PACLITAXEL. [Suspect]
     Active Substance: PACLITAXEL
     Indication: BREAST CANCER
     Dosage: DOSE OF LAST ADMINISTRATION PRIOR TO SAE 06/APR/2021
     Route: 042
     Dates: start: 20210222
  8. XANAX [Concomitant]
     Active Substance: ALPRAZOLAM
     Dosage: 2 TABLET IN THE EVENING
  9. MELATONIN [Concomitant]
     Active Substance: MELATONIN
  10. TRASTUZUMAB. [Suspect]
     Active Substance: TRASTUZUMAB
     Indication: BREAST CANCER
     Dosage: DOSE OF LAST ADMINISTRATION PRIOR TO SAE 06/APR/2021
     Route: 058
     Dates: start: 20210222

REACTIONS (1)
  - Pain [Not Recovered/Not Resolved]

NARRATIVE: CASE EVENT DATE: 20210605
